FAERS Safety Report 21904864 (Version 5)
Quarter: 2024Q4

REPORT INFORMATION
  Report Type: Report from Study
  Country: US (occurrence: US)
  Receive Date: 20230124
  Receipt Date: 20241227
  Transmission Date: 20250115
  Serious: Yes (Other)
  Sender: TAKEDA
  Company Number: US-TAKEDA-2023TUS007814

PATIENT
  Sex: Female

DRUGS (1)
  1. VEDOLIZUMAB [Suspect]
     Active Substance: VEDOLIZUMAB
     Indication: Crohn^s disease
     Dosage: 300 MILLIGRAM, Q6WEEKS

REACTIONS (5)
  - Crohn^s disease [Unknown]
  - Perirectal abscess [Unknown]
  - Small intestinal obstruction [Unknown]
  - Illness [Unknown]
  - Off label use [Unknown]
